FAERS Safety Report 12672658 (Version 2)
Quarter: 2016Q3

REPORT INFORMATION
  Report Type: Report from Study
  Country: US (occurrence: US)
  Receive Date: 20160822
  Receipt Date: 20160829
  Transmission Date: 20161109
  Serious: Yes (Hospitalization, Other)
  Sender: FDA-Public Use
  Company Number: US-GILEAD-2016-0229484

PATIENT
  Age: 64 Year
  Sex: Male

DRUGS (1)
  1. AMBRISENTAN [Suspect]
     Active Substance: AMBRISENTAN
     Indication: PRODUCT USED FOR UNKNOWN INDICATION
     Dosage: 10 MG, UNK
     Route: 065
     Dates: start: 20120622

REACTIONS (5)
  - Vasodilatation [Unknown]
  - Drug prescribing error [Recovered/Resolved]
  - Venous pressure increased [Unknown]
  - Arteriovenous malformation [Recovered/Resolved]
  - Stent placement [Unknown]
